FAERS Safety Report 7472059-9 (Version None)
Quarter: 2011Q2

REPORT INFORMATION
  Report Type: 
  Country: None (occurrence: None)
  Receive Date: 20110511
  Receipt Date: 20101111
  Transmission Date: 20111010
  Serious: No
  Sender: FDA-Public Use
  Company Number: A0892037A

PATIENT
  Age: 63 Year
  Sex: Female

DRUGS (9)
  1. OXYCODONE [Concomitant]
  2. CITALOPRAM HYDROBROMIDE [Concomitant]
  3. TYKERB [Suspect]
     Indication: BREAST CANCER
     Dosage: 5TAB PER DAY
     Route: 048
     Dates: start: 20101102
  4. OMEPRAZOLE [Concomitant]
  5. VITAMIN D [Concomitant]
  6. FISH OIL [Concomitant]
  7. OXYCONTIN [Concomitant]
  8. TRAZODONE HCL [Concomitant]
  9. WARFARIN [Concomitant]

REACTIONS (6)
  - NAUSEA [None]
  - DECREASED APPETITE [None]
  - ENDODONTIC PROCEDURE [None]
  - DYSGEUSIA [None]
  - CYSTITIS [None]
  - NERVE INJURY [None]
